FAERS Safety Report 23570201 (Version 1)
Quarter: 2024Q1

REPORT INFORMATION
  Report Type: Spontaneous
  Country: US (occurrence: None)
  Receive Date: 20240226
  Receipt Date: 20240226
  Transmission Date: 20240410
  Serious: Yes (Disabling)
  Sender: FDA-Public Use
  Company Number: None

PATIENT
  Age: 62 Year
  Sex: Female
  Weight: 67.5 kg

DRUGS (1)
  1. MONTELUKAST [Suspect]
     Active Substance: MONTELUKAST SODIUM
     Indication: Asthma
     Dosage: FREQUENCY : AT BEDTIME;?
     Route: 048
     Dates: start: 20000101, end: 20240110

REACTIONS (2)
  - Mental disorder [None]
  - Suicidal ideation [None]

NARRATIVE: CASE EVENT DATE: 20240201
